FAERS Safety Report 14148229 (Version 2)
Quarter: 2017Q4

REPORT INFORMATION
  Report Type: Spontaneous
  Country: IN (occurrence: IN)
  Receive Date: 20171101
  Receipt Date: 20171127
  Transmission Date: 20180321
  Serious: Yes (Hospitalization, Other)
  Sender: FDA-Public Use
  Company Number: IN-CONCORDIA PHARMACEUTICALS INC.-E2B_00008453

PATIENT
  Age: 15 Year
  Sex: Male

DRUGS (3)
  1. PREDNISOLONE. [Suspect]
     Active Substance: PREDNISOLONE
     Indication: NEUROCYSTICERCOSIS
     Route: 048
  2. ALBENDAZOLE [Suspect]
     Active Substance: ALBENDAZOLE
     Indication: NEUROCYSTICERCOSIS
  3. PHENYTOIN. [Concomitant]
     Active Substance: PHENYTOIN
     Indication: NEUROCYSTICERCOSIS

REACTIONS (1)
  - Peripheral artery thrombosis [Recovered/Resolved]
